FAERS Safety Report 5366137-8 (Version None)
Quarter: 2007Q2

REPORT INFORMATION
  Report Type: 
  Country: None (occurrence: None)
  Receive Date: 20070530
  Receipt Date: 20070208
  Transmission Date: 20071010
  Serious: No
  Sender: FDA-Public Use
  Company Number: 2005PV002443

PATIENT
  Age: 76 Year
  Sex: Female
  Weight: 53.0709 kg

DRUGS (9)
  1. BYETTA [Suspect]
     Indication: DIABETES MELLITUS NON-INSULIN-DEPENDENT
     Dosage: 5 MCG;BID;SC   5 MCG;PRN;SC
     Route: 058
     Dates: start: 20050829, end: 20060101
  2. BYETTA [Suspect]
     Indication: DIABETES MELLITUS NON-INSULIN-DEPENDENT
     Dosage: 5 MCG;BID;SC   5 MCG;PRN;SC
     Route: 058
     Dates: start: 20060101
  3. CLINORIL [Concomitant]
  4. ENBREL [Concomitant]
  5. SYNTHROID [Concomitant]
  6. VYTORIN [Concomitant]
  7. FOSAMAX [Concomitant]
  8. RESTASIS [Concomitant]
  9. PREVACID [Concomitant]

REACTIONS (9)
  - BLOOD GLUCOSE INCREASED [None]
  - DYSGEUSIA [None]
  - FEELING HOT [None]
  - HYPERHIDROSIS [None]
  - HYPOGLYCAEMIA [None]
  - MENTAL IMPAIRMENT [None]
  - NAUSEA [None]
  - NERVOUSNESS [None]
  - TREMOR [None]
